FAERS Safety Report 6221310-1 (Version None)
Quarter: 2009Q2

REPORT INFORMATION
  Report Type: 
  Country: None (occurrence: None)
  Receive Date: 20090608
  Receipt Date: 20090522
  Transmission Date: 20091009
  Serious: Yes (Other)
  Sender: FDA-Public Use
  Company Number: IDA-00211

PATIENT
  Age: 31 Year
  Sex: Female

DRUGS (3)
  1. PROPRANOLOL HYDROCHLORIDE [Suspect]
     Indication: HYPERTHYROIDISM
     Dosage: 10 MG Q6H ORAL FORMULATION: TABLET
     Route: 048
  2. METOPROLOL SUCCINATE [Suspect]
     Indication: HYPERTHYROIDISM
     Dosage: 10 MG Q8H ORAL FORMULATION: TABLET
     Route: 048
  3. METIMAZOL (THIAMAZOLE) [Concomitant]

REACTIONS (9)
  - ABORTION INDUCED [None]
  - BASEDOW'S DISEASE [None]
  - CONDITION AGGRAVATED [None]
  - DRUG EXPOSURE DURING PREGNANCY [None]
  - HYPERTHYROIDISM [None]
  - PRE-ECLAMPSIA [None]
  - REFUSAL OF TREATMENT BY PATIENT [None]
  - THYROID CANCER [None]
  - TOXIC NODULAR GOITRE [None]
